FAERS Safety Report 15291012 (Version 3)
Quarter: 2018Q3

REPORT INFORMATION
  Report Type: Spontaneous
  Country: FR (occurrence: FR)
  Receive Date: 20180817
  Receipt Date: 20180921
  Transmission Date: 20181010
  Serious: Yes (Other)
  Sender: FDA-Public Use
  Company Number: PHHY2018FR072922

PATIENT
  Sex: Male

DRUGS (4)
  1. TACROLIMUS. [Suspect]
     Active Substance: TACROLIMUS
     Indication: RENAL TRANSPLANT
     Dosage: 14 MG, QD
     Route: 048
     Dates: start: 20170920
  2. CELLCEPT [Concomitant]
     Active Substance: MYCOPHENOLATE MOFETIL\MYCOPHENOLATE MOFETIL HYDROCHLORIDE
     Indication: IMMUNOSUPPRESSION
     Dosage: 2000 DF, QD (2000 (UNKNOWN UNIT), ONCE DAILY)
     Route: 065
     Dates: start: 20170927
  3. SOLUPRED [Concomitant]
     Indication: IMMUNOSUPPRESSION
     Dosage: 1 DF, QD (10 (UNKNOWN UNIT), ONCE DAILY)
     Route: 065
     Dates: start: 20170927
  4. SOLUPRED /00016201/ [Concomitant]
     Active Substance: PREDNISOLONE
     Indication: IMMUNOSUPPRESSION
     Dosage: 1 OT (UNKNOWN UNIT), QD
     Route: 065
     Dates: start: 20170927

REACTIONS (2)
  - Squamous cell carcinoma [Recovered/Resolved]
  - Hyperglycaemia [Not Recovered/Not Resolved]

NARRATIVE: CASE EVENT DATE: 20171102
